FAERS Safety Report 4277615-7 (Version None)
Quarter: 2004Q1

REPORT INFORMATION
  Report Type: 
  Country: None (occurrence: None)
  Receive Date: 20040121
  Receipt Date: 20040108
  Transmission Date: 20041129
  Serious: Yes (Death)
  Sender: FDA-Public Use
  Company Number: 2004UW00731

PATIENT
  Age: 71 Year
  Sex: Male

DRUGS (8)
  1. CRESTOR [Suspect]
     Dosage: 10 MG DAILY
     Dates: start: 20031106
  2. ACTOS ^LILLY^ [Concomitant]
  3. CLONIDINE [Concomitant]
  4. ATENOLOL [Concomitant]
  5. AVALIDE [Concomitant]
  6. PRAVACHOL [Concomitant]
  7. NORVASC [Concomitant]
  8. ASPIRIN [Concomitant]

REACTIONS (1)
  - DEATH [None]
